FAERS Safety Report 11351005 (Version 1)
Quarter: 2015Q3

REPORT INFORMATION
  Report Type: Spontaneous
  Country: US (occurrence: US)
  Receive Date: 20150807
  Receipt Date: 20150807
  Transmission Date: 20151125
  Serious: No
  Sender: FDA-Public Use
  Company Number: US-JNJFOC-20141106113

PATIENT
  Age: 32 Year
  Sex: Female
  Weight: 72.58 kg

DRUGS (3)
  1. MENS ROGAINE EXTRA STRENGTH [Suspect]
     Active Substance: MINOXIDIL
     Route: 061
  2. MENS ROGAINE EXTRA STRENGTH [Suspect]
     Active Substance: MINOXIDIL
     Indication: ALOPECIA
     Dosage: PATIENT USED HALF TO 3/4 CUP.
     Route: 061
     Dates: start: 20141010, end: 20141104
  3. HAIR NUTRITION [Concomitant]
     Indication: HAIR GROWTH ABNORMAL
     Route: 065

REACTIONS (4)
  - Product use issue [Unknown]
  - Erythema [Not Recovered/Not Resolved]
  - Skin irritation [Not Recovered/Not Resolved]
  - Incorrect dose administered [Unknown]
